FAERS Safety Report 5103252-8 (Version None)
Quarter: 2006Q3

REPORT INFORMATION
  Report Type: 
  Country: None (occurrence: None)
  Receive Date: 20060908
  Receipt Date: 20060901
  Transmission Date: 20061208
  Serious: Yes (Other)
  Sender: FDA-Public Use
  Company Number: CHWYE830401SEP06

PATIENT
  Age: 19 Year
  Sex: Female

DRUGS (2)
  1. EFFEXOR [Suspect]
     Indication: DEPRESSION
     Dosage: 150 MG 1X PER 1 DAY ORAL
     Route: 048
     Dates: start: 20050201, end: 20050801
  2. VALPROATE SODIUM [Suspect]
     Indication: DEPRESSION
     Dosage: 0.3 G 2X PER 1 DAY ORAL
     Route: 048
     Dates: start: 20050201, end: 20050801

REACTIONS (4)
  - ABORTION SPONTANEOUS INCOMPLETE [None]
  - DRUG EXPOSURE DURING PREGNANCY [None]
  - INTRA-UTERINE DEATH [None]
  - UNINTENDED PREGNANCY [None]
